FAERS Safety Report 21641409 (Version 5)
Quarter: 2023Q2

REPORT INFORMATION
  Report Type: Report from Study
  Country: DE (occurrence: DE)
  Receive Date: 20221125
  Receipt Date: 20230406
  Transmission Date: 20230721
  Serious: Yes (Hospitalization)
  Sender: FDA-Public Use
  Company Number: DE-002147023-NVSC2022DE261541

PATIENT
  Age: 78 Year
  Sex: Female
  Weight: 64 kg

DRUGS (11)
  1. TRAMETINIB [Suspect]
     Active Substance: TRAMETINIB
     Indication: Non-small cell lung cancer
     Dosage: 0.5 MG, QD (TOTAL DAILY DOSE)
     Route: 048
     Dates: start: 20220726, end: 20220921
  2. TRAMETINIB [Suspect]
     Active Substance: TRAMETINIB
     Dosage: 0.5 MG, QD (TOTAL DAILY DOSE)
     Route: 048
     Dates: start: 20221008, end: 20221117
  3. TRAMETINIB [Suspect]
     Active Substance: TRAMETINIB
     Dosage: 0.5 MG, QD
     Route: 048
     Dates: start: 20221126, end: 20221129
  4. TRAMETINIB [Suspect]
     Active Substance: TRAMETINIB
     Dosage: 0.5 MG, QD
     Route: 048
  5. NAZARTINIB [Suspect]
     Active Substance: NAZARTINIB
     Indication: Non-small cell lung cancer
     Dosage: 100 MG, QD (TOTAL DAILY DOSE)
     Route: 048
     Dates: start: 20220726, end: 20220921
  6. NAZARTINIB [Suspect]
     Active Substance: NAZARTINIB
     Dosage: 75 MG, QD (TOTAL DAILY DOSE)
     Route: 048
     Dates: start: 20221008, end: 20221117
  7. NAZARTINIB [Suspect]
     Active Substance: NAZARTINIB
     Dosage: 75 MG, QD (TOTAL DAILY DOSE)
     Route: 048
     Dates: start: 20221126, end: 20221129
  8. NAZARTINIB [Suspect]
     Active Substance: NAZARTINIB
     Dosage: 75 MG, QD
     Route: 048
  9. BISOPROLOL [Concomitant]
     Active Substance: BISOPROLOL
     Indication: Atrial fibrillation
     Dosage: 5 MG
     Route: 048
     Dates: start: 20221005
  10. TINZAPARIN [Concomitant]
     Active Substance: TINZAPARIN
     Indication: Atrial fibrillation
     Dosage: 10.000 IE
     Route: 058
     Dates: start: 20220927
  11. CANDESARTAN [Concomitant]
     Active Substance: CANDESARTAN
     Indication: Hypertension
     Dosage: 8 MG
     Route: 048

REACTIONS (2)
  - Arthritis infective [Recovered/Resolved]
  - Pelvic fracture [Recovered/Resolved]

NARRATIVE: CASE EVENT DATE: 20221114
